FAERS Safety Report 8908264 (Version 2)
Quarter: 2013Q3

REPORT INFORMATION
  Report Type: Report from Study
  Country: US (occurrence: US)
  Receive Date: 20121114
  Receipt Date: 20130701
  Transmission Date: 20140515
  Serious: Yes (Other)
  Sender: FDA-Public Use
  Company Number: PHEH2012US022348

PATIENT
  Sex: Female
  Weight: 43.99 kg

DRUGS (7)
  1. GLEEVEC [Suspect]
     Indication: SOFT TISSUE CANCER
     Dosage: 400 MG, DAILY
     Route: 048
     Dates: start: 20121019
  2. GLEEVEC [Suspect]
     Dosage: 100 MG, DAILY
     Route: 048
     Dates: start: 201306
  3. MULTIVITAMINS [Concomitant]
  4. PRISTIQ [Concomitant]
     Dosage: 100 MG
  5. METHADONE HCL [Concomitant]
     Dosage: 5 MG
  6. BEYAZ [Concomitant]
     Dosage: UNK UKN, UNK
  7. GABAPENTIN [Concomitant]
     Dosage: 600 MG

REACTIONS (2)
  - Toxicity to various agents [Unknown]
  - Nausea [Unknown]
